FAERS Safety Report 23665302 (Version 1)
Quarter: 2024Q1

REPORT INFORMATION
  Report Type: Other
  Country: US (occurrence: US)
  Receive Date: 20240322
  Receipt Date: 20240322
  Transmission Date: 20240409
  Serious: No
  Sender: FDA-Public Use
  Company Number: US-Nova Laboratories Limited-2154708

PATIENT
  Age: 35 Year
  Sex: Female

DRUGS (11)
  1. PURIXAN [Suspect]
     Active Substance: MERCAPTOPURINE
     Indication: Crohn^s disease
  2. ADALIMUMAB [Suspect]
     Active Substance: ADALIMUMAB\ISOPROPYL ALCOHOL
  3. PREDNISONE [Suspect]
     Active Substance: PREDNISONE
  4. TACROLIMUS [Suspect]
     Active Substance: TACROLIMUS
     Route: 061
  5. CLOBETASOL PROPIONATE [Suspect]
     Active Substance: CLOBETASOL PROPIONATE
     Route: 061
  6. METRONIDAZOLE [Suspect]
     Active Substance: METRONIDAZOLE
     Route: 048
  7. METHOTREXATE [Suspect]
     Active Substance: METHOTREXATE
  8. AZATHIOPRINE [Suspect]
     Active Substance: AZATHIOPRINE
  9. MESALAMINE [Suspect]
     Active Substance: MESALAMINE
  10. INFLIXIMAB [Suspect]
     Active Substance: INFLIXIMAB
  11. CYCLOSPORINE [Suspect]
     Active Substance: CYCLOSPORINE

REACTIONS (2)
  - Treatment failure [Unknown]
  - Off label use [Unknown]
